FAERS Safety Report 14093238 (Version 2)
Quarter: 2017Q4

REPORT INFORMATION
  Report Type: Spontaneous
  Country: KZ (occurrence: KZ)
  Receive Date: 20171016
  Receipt Date: 20171024
  Transmission Date: 20180321
  Serious: Yes (Hospitalization, Other)
  Sender: FDA-Public Use
  Company Number: KZ-JNJFOC-20171013756

PATIENT
  Age: 76 Year
  Sex: Male
  Weight: 61.68 kg

DRUGS (2)
  1. XARELTO [Suspect]
     Active Substance: RIVAROXABAN
     Indication: ANTICOAGULANT THERAPY
     Route: 048
  2. XARELTO [Suspect]
     Active Substance: RIVAROXABAN
     Indication: ANTICOAGULANT THERAPY
     Route: 048
     Dates: start: 20171010

REACTIONS (7)
  - Gastrointestinal haemorrhage [Unknown]
  - Haematochezia [Unknown]
  - Red blood cell count decreased [Unknown]
  - Gastritis erosive [Unknown]
  - Occult blood positive [Unknown]
  - Haemoglobin decreased [Unknown]
  - Haemorrhagic erosive gastritis [Unknown]

NARRATIVE: CASE EVENT DATE: 20160912
